FAERS Safety Report 15603261 (Version 1)
Quarter: 2018Q4

REPORT INFORMATION
  Report Type: Spontaneous
  Country: US (occurrence: US)
  Receive Date: 20181109
  Receipt Date: 20181109
  Transmission Date: 20190205
  Serious: Yes (Life-Threatening, Other)
  Sender: FDA-Public Use
  Company Number: PHEH2018US047638

PATIENT

DRUGS (1)
  1. EXTAVIA [Suspect]
     Active Substance: INTERFERON BETA-1B
     Indication: MULTIPLE SCLEROSIS
     Route: 065

REACTIONS (5)
  - Extrasystoles [Unknown]
  - Insomnia [Unknown]
  - Feeling abnormal [Unknown]
  - Palpitations [Unknown]
  - Cardiac failure congestive [Unknown]
